FAERS Safety Report 7942423-X (Version None)
Quarter: 2011Q4

REPORT INFORMATION
  Report Type: 
  Country: None (occurrence: None)
  Receive Date: 20111128
  Receipt Date: 20111116
  Transmission Date: 20120403
  Serious: Yes (Death, Hospitalization)
  Sender: FDA-Public Use
  Company Number: US-GLAXOSMITHKLINE-A0779252A

PATIENT
  Age: 63 Year
  Sex: Male
  Weight: 181.8 kg

DRUGS (12)
  1. TOPROL-XL [Concomitant]
  2. HYZAAR [Concomitant]
  3. LISINOPRIL [Concomitant]
  4. VERAPAMIL [Concomitant]
  5. HYDROCHLOROTHIAZIDE [Concomitant]
  6. INSULIN [Concomitant]
  7. ZESTRIL [Concomitant]
  8. FUROSEMIDE [Concomitant]
  9. AVANDIA [Suspect]
     Indication: DIABETES MELLITUS
     Dosage: 8MG UNKNOWN
     Route: 048
     Dates: end: 20070213
  10. METFORMIN HCL [Concomitant]
  11. AMARYL [Concomitant]
  12. GLYBURIDE [Concomitant]

REACTIONS (4)
  - CORONARY ARTERY DISEASE [None]
  - RENAL FAILURE [None]
  - PULMONARY HYPERTENSION [None]
  - ACUTE MYOCARDIAL INFARCTION [None]
